FAERS Safety Report 11842691 (Version 1)
Quarter: 2015Q4

REPORT INFORMATION
  Report Type: Spontaneous
  Country: US (occurrence: US)
  Receive Date: 20151216
  Receipt Date: 20151216
  Transmission Date: 20160305
  Serious: Yes (Other)
  Sender: FDA-Public Use
  Company Number: CHPA2015US014115

PATIENT
  Age: 66 Year
  Sex: Female

DRUGS (1)
  1. BENEFIBER HEALTHY SHAPE [Suspect]
     Active Substance: STARCH, WHEAT
     Indication: PRODUCT USED FOR UNKNOWN INDICATION
     Dosage: 1 ROUNDED TABLESPOON
     Route: 048
     Dates: start: 20151124

REACTIONS (5)
  - Vomiting [Not Recovered/Not Resolved]
  - Hypersensitivity [Unknown]
  - Asthma [Recovered/Resolved]
  - Dyspnoea [Recovered/Resolved]
  - Retching [Not Recovered/Not Resolved]

NARRATIVE: CASE EVENT DATE: 20151124
